FAERS Safety Report 18349236 (Version 1)
Quarter: 2020Q4

REPORT INFORMATION
  Report Type: Spontaneous
  Country: US (occurrence: US)
  Receive Date: 20201006
  Receipt Date: 20201006
  Transmission Date: 20210114
  Serious: No
  Sender: FDA-Public Use
  Company Number: US-PFIZER INC-2020381204

PATIENT
  Sex: Female

DRUGS (1)
  1. ALPRAZOLAM. [Suspect]
     Active Substance: ALPRAZOLAM
     Indication: INSOMNIA
     Dosage: UNK

REACTIONS (5)
  - Drug ineffective for unapproved indication [Unknown]
  - Feeling abnormal [Unknown]
  - Dizziness [Unknown]
  - Off label use [Unknown]
  - Euphoric mood [Unknown]
